FAERS Safety Report 16159180 (Version 1)
Quarter: 2019Q2

REPORT INFORMATION
  Report Type: Spontaneous
  Country: US (occurrence: US)
  Receive Date: 20190404
  Receipt Date: 20190404
  Transmission Date: 20190711
  Serious: Yes (Hospitalization, Other)
  Sender: FDA-Public Use
  Company Number: US-ASTRAZENECA-2019SE49331

PATIENT
  Age: 2638 Week
  Sex: Female
  Weight: 53.5 kg

DRUGS (1)
  1. TAGRISSO [Suspect]
     Active Substance: OSIMERTINIB
     Indication: LUNG NEOPLASM MALIGNANT
     Route: 048
     Dates: start: 20181226

REACTIONS (6)
  - Cerebrovascular accident [Unknown]
  - Respiratory failure [Recovering/Resolving]
  - Pancreatitis [Not Recovered/Not Resolved]
  - Malignant neoplasm progression [Unknown]
  - Acne [Not Recovered/Not Resolved]
  - Rash [Unknown]

NARRATIVE: CASE EVENT DATE: 20181226
